FAERS Safety Report 13576175 (Version 1)
Quarter: 2017Q2

REPORT INFORMATION
  Report Type: Spontaneous
  Country: GB (occurrence: GB)
  Receive Date: 20170524
  Receipt Date: 20170524
  Transmission Date: 20170830
  Serious: Yes (Other)
  Sender: FDA-Public Use
  Company Number: GB-DRREDDYS-GER/UKI/17/0090791

PATIENT
  Age: 36 Year
  Sex: Male
  Weight: 82.55 kg

DRUGS (2)
  1. KEPPRA [Concomitant]
     Active Substance: LEVETIRACETAM
     Indication: PRODUCT USED FOR UNKNOWN INDICATION
  2. LAMOTRIGINE. [Suspect]
     Active Substance: LAMOTRIGINE
     Indication: JUVENILE MYOCLONIC EPILEPSY
     Route: 048
     Dates: start: 20160509, end: 20161009

REACTIONS (7)
  - Myoclonus [Recovered/Resolved]
  - Anxiety [Recovering/Resolving]
  - Condition aggravated [Recovered/Resolved]
  - Fear [Recovering/Resolving]
  - Abnormal dreams [Recovered/Resolved]
  - Social avoidant behaviour [Unknown]
  - Insomnia [Recovered/Resolved]

NARRATIVE: CASE EVENT DATE: 20160606
